FAERS Safety Report 4490741-2 (Version None)
Quarter: 2004Q4

REPORT INFORMATION
  Report Type: 
  Country: None (occurrence: None)
  Receive Date: 20041027
  Receipt Date: 20041018
  Transmission Date: 20050328
  Serious: No
  Sender: FDA-Public Use
  Company Number: 2004-121410-NL

PATIENT
  Age: 70 Year
  Sex: Male

DRUGS (7)
  1. VECURONIUM (SEE ATTACHED PAGES FOR ADDITIONAL SUSPECT DRUGS) [Suspect]
     Indication: INDUCTION OF ANAESTHESIA
  2. SORBITOL [Concomitant]
  3. AMPICILLIN [Concomitant]
  4. ROPIVACAINE [Concomitant]
  5. PROPOFOL [Concomitant]
  6. FENTANYL [Concomitant]
  7. LIDOCAINE [Concomitant]

REACTIONS (3)
  - ANAESTHETIC COMPLICATION [None]
  - ANAPHYLACTIC SHOCK [None]
  - ELECTROCARDIOGRAM ST SEGMENT DEPRESSION [None]
